FAERS Safety Report 4888134-9 (Version None)
Quarter: 2006Q1

REPORT INFORMATION
  Report Type: 
  Country: None (occurrence: None)
  Receive Date: 20060123
  Receipt Date: 20060112
  Transmission Date: 20060701
  Serious: Yes (Hospitalization)
  Sender: FDA-Public Use
  Company Number: FR-GILEAD-2006-0009103

PATIENT
  Age: 44 Year
  Sex: Male

DRUGS (5)
  1. EMTRIVA [Suspect]
     Indication: HIV INFECTION
     Route: 048
     Dates: start: 20051201
  2. VIREAD [Suspect]
     Indication: HIV INFECTION
     Route: 048
     Dates: start: 20051201
  3. KALETRA [Concomitant]
     Indication: HIV INFECTION
     Route: 048
     Dates: start: 20051201
  4. BACTRIM DS [Concomitant]
     Indication: PROPHYLAXIS
     Route: 048
     Dates: start: 20051201
  5. TRIZIVIR [Concomitant]
     Dates: end: 20051201

REACTIONS (5)
  - APHASIA [None]
  - ASTHENIA [None]
  - DEMYELINATION [None]
  - FATIGUE [None]
  - PERIPHERAL PARALYSIS [None]
